FAERS Safety Report 4706937-8 (Version None)
Quarter: 2005Q3

REPORT INFORMATION
  Report Type: 
  Country: None (occurrence: None)
  Receive Date: 20050706
  Receipt Date: 20050624
  Transmission Date: 20060218
  Serious: Yes (Hospitalization)
  Sender: FDA-Public Use
  Company Number: PHNU2005DE02363

PATIENT
  Sex: Female

DRUGS (13)
  1. TEGRETOL [Suspect]
     Indication: BIPOLAR DISORDER
     Dosage: 600 MG/DAY
     Route: 048
  2. QUILONUM [Suspect]
     Indication: BIPOLAR DISORDER
     Dosage: 900 MG/DAY
     Route: 048
  3. ZYPREXA [Suspect]
     Dosage: 20 MG/DAY
     Route: 048
     Dates: start: 20041021, end: 20041023
  4. ZYPREXA [Suspect]
     Dosage: 15 MG/DAY
     Route: 048
     Dates: start: 20041024, end: 20041024
  5. ZYPREXA [Suspect]
     Dosage: 10 MG/DAY
     Route: 048
     Dates: start: 20041025
  6. TAVOR [Suspect]
     Dosage: 4 MG/DAY
     Route: 048
     Dates: start: 20041016, end: 20041020
  7. TAVOR [Suspect]
     Dosage: 6 MG/DAY
     Route: 048
     Dates: start: 20041021, end: 20041021
  8. TAVOR [Suspect]
     Dosage: 2 MG/DAY
     Route: 048
     Dates: start: 20041023, end: 20041023
  9. TAVOR [Suspect]
     Dosage: 4 MG/DAY
     Route: 048
     Dates: start: 20041024, end: 20041025
  10. TAVOR [Suspect]
     Dosage: 3 MG/DAY
     Route: 048
     Dates: start: 20041026
  11. DIOVAN [Concomitant]
     Dosage: 80 MG/DAY
     Route: 048
     Dates: start: 20041016
  12. NATRILIX [Concomitant]
     Dosage: 1 DF, QD
     Route: 048
     Dates: start: 20041016
  13. INSULIN HUMAN [Concomitant]

REACTIONS (12)
  - AGITATION [None]
  - ANTIDEPRESSANT DRUG LEVEL DECREASED [None]
  - BLOOD ALKALINE PHOSPHATASE INCREASED [None]
  - BLOOD GLUCOSE INCREASED [None]
  - C-REACTIVE PROTEIN INCREASED [None]
  - COORDINATION ABNORMAL [None]
  - DYSARTHRIA [None]
  - FALL [None]
  - GAIT DISTURBANCE [None]
  - GAMMA-GLUTAMYLTRANSFERASE INCREASED [None]
  - GLUTAMATE DEHYDROGENASE INCREASED [None]
  - SEDATION [None]
